FAERS Safety Report 8121554-8 (Version None)
Quarter: 2012Q1

REPORT INFORMATION
  Report Type: 
  Country: None (occurrence: None)
  Receive Date: 20120203
  Receipt Date: 20120126
  Transmission Date: 20120608
  Serious: Yes (Other)
  Sender: FDA-Public Use
  Company Number: AUR-APL-2012-00686

PATIENT
  Age: 78 Year
  Sex: Female
  Weight: 49 kg

DRUGS (3)
  1. ALENDRONIC ACID (ALENDRONIC ACID) [Suspect]
     Indication: OSTEOPOROSIS
     Dosage: 10 MG (70 MG, 1 IN 1 WK), ORAL, 10 MG (70 MG, 1 IN 1 WK), ORAL
     Route: 048
     Dates: start: 20080901, end: 20111011
  2. ALENDRONIC ACID (ALENDRONIC ACID) [Suspect]
     Indication: OSTEOPOROSIS
     Dosage: 10 MG (70 MG, 1 IN 1 WK), ORAL, 10 MG (70 MG, 1 IN 1 WK), ORAL
     Route: 048
     Dates: start: 20020601, end: 20070701
  3. CITICOLINE (CITICOLINE) [Concomitant]

REACTIONS (1)
  - OSTEONECROSIS OF JAW [None]
